FAERS Safety Report 7152000-9 (Version None)
Quarter: 2010Q4

REPORT INFORMATION
  Report Type: 
  Country: None (occurrence: None)
  Receive Date: 20101211
  Receipt Date: 20101203
  Transmission Date: 20110411
  Serious: Yes (Other)
  Sender: FDA-Public Use
  Company Number: DE-PFIZER INC-2010136468

PATIENT
  Age: 39 Year
  Sex: Male

DRUGS (5)
  1. LYRICA [Suspect]
     Indication: PAIN
     Dosage: 150 MG, 2X/DAY
  2. LYRICA [Suspect]
     Indication: POLYNEUROPATHY ALCOHOLIC
     Dosage: 600 MG, UNK
  3. LYRICA [Suspect]
     Indication: DEPRESSION
     Dosage: 900 MG, UNK
  4. LYRICA [Suspect]
     Dosage: 1200 MG, UNK
  5. SEROQUEL [Concomitant]
     Dosage: 75 MG DAILY (25-0-50MG)

REACTIONS (3)
  - DRUG DEPENDENCE [None]
  - EUPHORIC MOOD [None]
  - WITHDRAWAL SYNDROME [None]
